FAERS Safety Report 7560955-3 (Version None)
Quarter: 2011Q2

REPORT INFORMATION
  Report Type: 
  Country: None (occurrence: None)
  Receive Date: 20110621
  Receipt Date: 20110607
  Transmission Date: 20111010
  Serious: Yes (Other)
  Sender: FDA-Public Use
  Company Number: CA-JNJFOC-20110605118

PATIENT
  Sex: Male
  Weight: 87.6 kg

DRUGS (3)
  1. OLMESARTAN MEDOXOMIL [Concomitant]
     Route: 065
  2. REMICADE [Suspect]
     Indication: CROHN'S DISEASE
     Dosage: 26 INFUSION TO DATE
     Route: 042
     Dates: start: 20100412
  3. AZATHIOPRINE [Concomitant]
     Route: 065

REACTIONS (1)
  - WRIST FRACTURE [None]
